FAERS Safety Report 5803840-7 (Version None)
Quarter: 2008Q3

REPORT INFORMATION
  Report Type: 
  Country: None (occurrence: None)
  Receive Date: 20080708
  Receipt Date: 20080703
  Transmission Date: 20090109
  Serious: Yes (Hospitalization)
  Sender: FDA-Public Use
  Company Number: JP-BOEHRINGER INGELHEIM GMBH, GERMANY-2008-BP-03835NB

PATIENT
  Sex: Female

DRUGS (6)
  1. MICARDIS [Suspect]
     Indication: HYPERTENSION
     Route: 048
     Dates: start: 20061101, end: 20070320
  2. HALFDIGOSIN [Concomitant]
     Route: 048
  3. HERBESSER R [Concomitant]
     Route: 048
  4. LIPITOR [Concomitant]
     Route: 048
  5. GASTER [Concomitant]
     Indication: PROPHYLAXIS
     Route: 048
  6. ASPIRIN [Concomitant]
     Route: 048

REACTIONS (3)
  - ANOREXIA [None]
  - BACK PAIN [None]
  - FALL [None]
